FAERS Safety Report 23584962 (Version 1)
Quarter: 2024Q1

REPORT INFORMATION
  Report Type: Spontaneous
  Country: GB (occurrence: GB)
  Receive Date: 20240301
  Receipt Date: 20240301
  Transmission Date: 20240410
  Serious: Yes (Life-Threatening, Other)
  Sender: FDA-Public Use
  Company Number: None

PATIENT
  Age: 27 Year
  Sex: Female
  Weight: 180 kg

DRUGS (22)
  1. MONTELUKAST [Suspect]
     Active Substance: MONTELUKAST SODIUM
     Indication: Asthma
     Dates: start: 20240129
  2. AMINOPHYLLINE [Concomitant]
     Active Substance: AMINOPHYLLINE
  3. CALCIUM CARBONATE\VITAMIN D [Concomitant]
     Active Substance: CALCIUM CARBONATE\VITAMIN D
  4. CARBOCYSTEINE [Concomitant]
     Active Substance: CARBOCYSTEINE
     Indication: Bronchiectasis
  5. ENOXAPARIN SODIUM [Concomitant]
     Active Substance: ENOXAPARIN SODIUM
  6. DOXYCYCLINE [Concomitant]
     Active Substance: DOXYCYCLINE
  7. BECLOMETHASONE\FORMOTEROL [Concomitant]
     Active Substance: BECLOMETHASONE\FORMOTEROL
     Indication: Asthma
  8. FUSIDIC ACID [Concomitant]
     Active Substance: FUSIDIC ACID
  9. HYDROCORTONE [Concomitant]
     Active Substance: HYDROCORTISONE
  10. IPRATROPIUM [Concomitant]
     Active Substance: IPRATROPIUM
  11. PERMETHRIN [Concomitant]
     Active Substance: PERMETHRIN
  12. MAGNESIUM [Concomitant]
     Active Substance: MAGNESIUM
  13. MORPHINE [Concomitant]
     Active Substance: MORPHINE
  14. NOREPINEPHRINE [Concomitant]
     Active Substance: NOREPINEPHRINE\NOREPINEPHRINE BITARTRATE
  15. OMEPRAZOLE [Concomitant]
     Active Substance: OMEPRAZOLE
  16. CHLORPHENIRAMINE MALEATE [Concomitant]
     Active Substance: CHLORPHENIRAMINE MALEATE
  17. PREDNISOLONE [Concomitant]
     Active Substance: PREDNISOLONE
  18. ALBUTEROL [Concomitant]
     Active Substance: ALBUTEROL
  19. SERTRALINE [Concomitant]
     Active Substance: SERTRALINE HYDROCHLORIDE
     Indication: Mixed anxiety and depressive disorder
  20. SPIRIVA [Concomitant]
     Active Substance: TIOTROPIUM BROMIDE MONOHYDRATE
     Indication: Asthma
  21. SODIUM CHLORIDE [Concomitant]
     Active Substance: SODIUM CHLORIDE
  22. THEOPHYLLINE ANHYDROUS [Concomitant]
     Active Substance: THEOPHYLLINE ANHYDROUS
     Indication: Asthma

REACTIONS (4)
  - Nightmare [Not Recovered/Not Resolved]
  - Suicidal ideation [Recovered/Resolved with Sequelae]
  - Anxiety [Recovered/Resolved with Sequelae]
  - Hallucination [Recovering/Resolving]

NARRATIVE: CASE EVENT DATE: 20240201
